FAERS Safety Report 24059483 (Version 2)
Quarter: 2024Q3

REPORT INFORMATION
  Report Type: Report from Study
  Country: US (occurrence: US)
  Receive Date: 20240708
  Receipt Date: 20240828
  Transmission Date: 20241016
  Serious: Yes (Death)
  Sender: ULTRAGENYX PHARMACEUTICAL
  Company Number: US-ULTRAGENYX PHARMACEUTICAL INC.-US-UGX-24-01291

PATIENT
  Age: 6 Year
  Sex: Male
  Weight: 13.8 kg

DRUGS (2)
  1. DOJOLVI [Suspect]
     Active Substance: TRIHEPTANOIN
     Indication: Very long-chain acyl-coenzyme A dehydrogenase deficiency
     Dosage: 18 ML, VIA G-TUBE
     Dates: start: 20210504
  2. DOJOLVI [Suspect]
     Active Substance: TRIHEPTANOIN
     Dosage: 72 MILLILITER, QD
     Route: 048

REACTIONS (2)
  - Condition aggravated [Fatal]
  - Organ failure [Fatal]

NARRATIVE: CASE EVENT DATE: 20240701
